FAERS Safety Report 9849329 (Version 2)
Quarter: 2014Q2

REPORT INFORMATION
  Report Type: Spontaneous
  Country: US (occurrence: US)
  Receive Date: 20140128
  Receipt Date: 20140513
  Transmission Date: 20141212
  Serious: Yes (Hospitalization)
  Sender: FDA-Public Use
  Company Number: PHEH2014US001722

PATIENT
  Sex: Male

DRUGS (10)
  1. EXELON PATCH [Suspect]
     Indication: DEMENTIA ALZHEIMER^S TYPE
     Dosage: 9.5 MG, QD
     Route: 062
  2. EXELON PATCH [Suspect]
     Dosage: 4.6 MG, UNK
     Route: 062
  3. EPLERENONE [Concomitant]
     Dosage: UNK UKN, UNK
  4. AMLODIPINE BESYLATE [Concomitant]
     Dosage: UNK UKN, UNK
  5. CRESTOR [Concomitant]
     Dosage: UNK UKN, UNK
  6. COREG [Concomitant]
     Dosage: UNK UKN, UNK
  7. ISOSORBIDE [Concomitant]
     Dosage: UNK UKN, UNK
  8. NAMENDA [Concomitant]
     Dosage: UNK UKN, UNK
  9. LOSARTAN [Concomitant]
     Dosage: UNK UKN, UNK
  10. BIOFLEX                            /00808401/ [Concomitant]
     Dosage: UNK UKN, UNK

REACTIONS (6)
  - Gastric disorder [Unknown]
  - Abdominal discomfort [Unknown]
  - Chills [Unknown]
  - Drug intolerance [Unknown]
  - Haematemesis [Unknown]
  - Tremor [Unknown]
